FAERS Safety Report 6269585-7 (Version None)
Quarter: 2009Q3

REPORT INFORMATION
  Report Type: 
  Country: None (occurrence: None)
  Receive Date: 20090714
  Receipt Date: 20090704
  Transmission Date: 20100115
  Serious: Yes (Hospitalization)
  Sender: FDA-Public Use
  Company Number: CHPA2009US14967

PATIENT
  Sex: Female

DRUGS (4)
  1. EXCEDRIN (MIGRAINE) [Suspect]
     Indication: MIGRAINE
     Dosage: 2 DF, QD, ORAL
     Route: 048
  2. EXCEDRIN (NCH) UNKNOWN [Suspect]
     Indication: HEADACHE
     Dosage: 2 DF, QD, ORAL, 6 DF, QD, ORAL, 2 DF, PRN, ORAL
     Route: 048
  3. EXCEDRIN (NCH) UNKNOWN [Suspect]
     Indication: MIGRAINE
     Dosage: 2 DF, QD, ORAL, 6 DF, QD, ORAL, 2 DF, PRN, ORAL
     Route: 048
  4. EXCEDRIN EXTRA STRENGTH (NCH) (CAFFEINE CITRATE, ACETYLSALICYLIC ACID, [Suspect]
     Dosage: ORAL
     Route: 048

REACTIONS (2)
  - CARDIAC DISORDER [None]
  - TRANSIENT ISCHAEMIC ATTACK [None]
